FAERS Safety Report 9177626 (Version 1)
Quarter: 2013Q1

REPORT INFORMATION
  Report Type: Spontaneous
  Country: US (occurrence: None)
  Receive Date: 20130315
  Receipt Date: 20130315
  Transmission Date: 20140127
  Serious: Yes (Hospitalization, Other)
  Sender: FDA-Public Use
  Company Number: USA/USA/13/0028521

PATIENT
  Age: 14 Year
  Sex: Female

DRUGS (3)
  1. LAMOTRIGINE [Suspect]
     Indication: BIPOLAR DISORDER
  2. BUPROPION (BUPROPION) [Suspect]
     Indication: BIPOLAR DISORDER
  3. CLINDAMYCIN [Suspect]
     Indication: LYMPHADENITIS

REACTIONS (15)
  - Drug reaction with eosinophilia and systemic symptoms [None]
  - Cardiac arrest [None]
  - Lymphadenitis [None]
  - Pharyngitis [None]
  - Glossitis [None]
  - Renal failure acute [None]
  - Fluid overload [None]
  - Anaemia [None]
  - Pancreatitis [None]
  - Thyroiditis [None]
  - Respiratory distress [None]
  - Respiratory failure [None]
  - Torsade de pointes [None]
  - Myocarditis [None]
  - Hypothyroidism [None]
